FAERS Safety Report 10487135 (Version 1)
Quarter: 2014Q4

REPORT INFORMATION
  Report Type: Report from Study
  Country: ES (occurrence: ES)
  Receive Date: 20141001
  Receipt Date: 20141001
  Transmission Date: 20150528
  Serious: Yes (Other)
  Sender: FDA-Public Use
  Company Number: ES-AMGEN-ESPSL2014074579

PATIENT
  Sex: Female

DRUGS (1)
  1. PROLIA [Suspect]
     Active Substance: DENOSUMAB
     Indication: OSTEOPOROSIS POSTMENOPAUSAL
     Dosage: UNK
     Route: 065

REACTIONS (21)
  - Back pain [Unknown]
  - Mobility decreased [Unknown]
  - Hypogonadism [Unknown]
  - Liver disorder [Unknown]
  - Groin pain [Unknown]
  - Alcoholism [Unknown]
  - Spinal deformity [Unknown]
  - Chronic kidney disease [Unknown]
  - Hypertension [Unknown]
  - Body height decreased [Unknown]
  - Cardiac failure congestive [Unknown]
  - Malnutrition [Unknown]
  - Chronic obstructive pulmonary disease [Unknown]
  - Asthenia [Unknown]
  - Weight decreased [Unknown]
  - Oophorectomy [Unknown]
  - Hysterectomy [Unknown]
  - Activities of daily living impaired [Unknown]
  - Immobile [Unknown]
  - Depression [Unknown]
  - Oestrogen deficiency [Unknown]
